FAERS Safety Report 15831810 (Version 1)
Quarter: 2019Q1

REPORT INFORMATION
  Report Type: Spontaneous
  Country: NL (occurrence: NL)
  Receive Date: 20190116
  Receipt Date: 20190116
  Transmission Date: 20190417
  Serious: Yes (Other)
  Sender: FDA-Public Use
  Company Number: NL-ACCORD-102068

PATIENT
  Age: 58 Year
  Sex: Female

DRUGS (1)
  1. INJEXATE [Suspect]
     Active Substance: METHOTREXATE SODIUM
     Indication: RHEUMATIC DISORDER
     Dosage: STRENGTH: 10 MG/WWSP 0.2 ML??DOSE: 10 MG ONCE A WEEK
     Route: 051
     Dates: start: 20180612, end: 20180910

REACTIONS (1)
  - Needle issue [Unknown]
